FAERS Safety Report 17256664 (Version 5)
Quarter: 2020Q4

REPORT INFORMATION
  Report Type: Spontaneous
  Country: US (occurrence: US)
  Receive Date: 20200110
  Receipt Date: 20201019
  Transmission Date: 20210113
  Serious: Yes (Other)
  Sender: FDA-Public Use
  Company Number: US-JNJFOC-20200105606

PATIENT
  Age: 3 Decade
  Sex: Female
  Weight: 51.76 kg

DRUGS (3)
  1. INVEGA SUSTENNA [Suspect]
     Active Substance: PALIPERIDONE PALMITATE
     Dosage: 2ND DOSE
     Route: 030
     Dates: start: 20200825
  2. INVEGA SUSTENNA [Suspect]
     Active Substance: PALIPERIDONE PALMITATE
  3. INVEGA SUSTENNA [Suspect]
     Active Substance: PALIPERIDONE PALMITATE
     Indication: PSYCHOTIC DISORDER
     Dosage: 1ST DOSE
     Route: 030
     Dates: start: 202008

REACTIONS (6)
  - Akathisia [Unknown]
  - Drug ineffective [Unknown]
  - Off label use [Unknown]
  - Hallucination [Unknown]
  - Speech disorder [Unknown]
  - Product use in unapproved indication [Unknown]

NARRATIVE: CASE EVENT DATE: 202008
